FAERS Safety Report 4601001-0 (Version None)
Quarter: 2005Q1

REPORT INFORMATION
  Report Type: 
  Country: None (occurrence: None)
  Receive Date: 20050307
  Receipt Date: 20050307
  Transmission Date: 20050727
  Serious: No
  Sender: FDA-Public Use
  Company Number: None

PATIENT
  Age: 38 Year
  Sex: Female
  Weight: 92.9874 kg

DRUGS (1)
  1. CLEAR CARE CLEANING AND CIBA VISION [Suspect]
     Dosage: DAILY OPHTHALMIC
     Route: 047

REACTIONS (2)
  - EYE BURNS [None]
  - MEDICATION ERROR [None]
